FAERS Safety Report 25041548 (Version 1)
Quarter: 2025Q1

REPORT INFORMATION
  Report Type: Spontaneous
  Country: US (occurrence: US)
  Receive Date: 20250305
  Receipt Date: 20250305
  Transmission Date: 20250409
  Serious: Yes (Hospitalization, Other)
  Sender: ELI LILLY AND COMPANY
  Company Number: US-ELI_LILLY_AND_COMPANY-US202502016986

PATIENT
  Sex: Female

DRUGS (5)
  1. TRULICITY [Suspect]
     Active Substance: DULAGLUTIDE
     Indication: Type 2 diabetes mellitus
     Route: 065
  2. GLIPIZIDE [Concomitant]
     Active Substance: GLIPIZIDE
     Indication: Blood insulin
  3. CYMBALTA [Concomitant]
     Active Substance: DULOXETINE HYDROCHLORIDE
     Indication: Depression
  4. METFORMIN [Concomitant]
     Active Substance: METFORMIN HYDROCHLORIDE
     Indication: Blood insulin
  5. GABAPENTIN [Concomitant]
     Active Substance: GABAPENTIN
     Indication: Neuralgia

REACTIONS (10)
  - Bladder cancer [Unknown]
  - Lung neoplasm malignant [Unknown]
  - Illness [Unknown]
  - COVID-19 [Unknown]
  - Injection site haemorrhage [Unknown]
  - Blood pressure decreased [Unknown]
  - Hiatus hernia [Unknown]
  - Dizziness [Unknown]
  - Injection site pain [Unknown]
  - Gastrooesophageal reflux disease [Unknown]
